FAERS Safety Report 6368318-3 (Version None)
Quarter: 2009Q3

REPORT INFORMATION
  Report Type: 
  Country: None (occurrence: None)
  Receive Date: 20090922
  Receipt Date: 20090716
  Transmission Date: 20100115
  Serious: Yes (Other)
  Sender: FDA-Public Use
  Company Number: US-BAYER-200916407NA

PATIENT
  Sex: Female

DRUGS (23)
  1. MAGNEVIST [Suspect]
     Indication: NUCLEAR MAGNETIC RESONANCE IMAGING BRAIN
     Dates: start: 20060427, end: 20060427
  2. OMNISCAN [Suspect]
     Indication: NUCLEAR MAGNETIC RESONANCE IMAGING
     Dosage: TOTAL DAILY DOSE: 40 ML
     Dates: start: 20020912, end: 20020912
  3. OPTIMARK [Suspect]
     Indication: NUCLEAR MAGNETIC RESONANCE IMAGING
  4. MULTIHANCE [Suspect]
     Indication: NUCLEAR MAGNETIC RESONANCE IMAGING
  5. PROHANCE [Suspect]
     Indication: NUCLEAR MAGNETIC RESONANCE IMAGING
  6. ACIPHEX [Concomitant]
     Indication: GASTROOESOPHAGEAL REFLUX DISEASE
  7. ALBUTEROL [Concomitant]
     Indication: WHEEZING
     Dates: start: 20021001, end: 20021101
  8. ALBUTEROL [Concomitant]
     Dates: start: 20080101
  9. CLONAZEPAM [Concomitant]
     Indication: ANXIETY
  10. COREG [Concomitant]
  11. COUMADIN [Concomitant]
     Indication: ANTICOAGULANT THERAPY
     Dates: start: 20020901, end: 20080101
  12. DEPO-PROVERA [Concomitant]
  13. EPOGEN [Concomitant]
     Indication: ANAEMIA
     Dates: start: 20020901
  14. EPOGEN [Concomitant]
     Dates: start: 20070901
  15. EPOGEN [Concomitant]
     Dates: start: 20010501
  16. LORTAB [Concomitant]
     Indication: PAIN
     Dates: start: 20050101
  17. VERAPAMIL [Concomitant]
     Indication: HYPERTENSION
  18. MULTI-VITAMINS [Concomitant]
     Indication: MEDICAL DIET
     Dates: start: 20000101
  19. CYCLOSPORINE [Concomitant]
     Indication: PROPHYLAXIS AGAINST TRANSPLANT REJECTION
     Dates: start: 20010101
  20. CELLCEPT [Concomitant]
     Indication: PROPHYLAXIS AGAINST TRANSPLANT REJECTION
     Dates: start: 20010101
  21. PREDNISONE [Concomitant]
     Indication: PROPHYLAXIS AGAINST TRANSPLANT REJECTION
     Dates: start: 20020101
  22. LOPRESSOR [Concomitant]
     Indication: HYPERTENSION
     Dates: start: 20010101
  23. LUPRON [Concomitant]
     Indication: BLOODY PERITONEAL EFFLUENT
     Dates: start: 20030401

REACTIONS (13)
  - ANHEDONIA [None]
  - ANXIETY [None]
  - EMOTIONAL DISTRESS [None]
  - GAIT DISTURBANCE [None]
  - JOINT RANGE OF MOTION DECREASED [None]
  - NEPHROGENIC SYSTEMIC FIBROSIS [None]
  - PAIN [None]
  - SKIN EXFOLIATION [None]
  - SKIN HYPERPIGMENTATION [None]
  - SKIN HYPERTROPHY [None]
  - SKIN INDURATION [None]
  - SKIN TIGHTNESS [None]
  - SUBCUTANEOUS NODULE [None]
